FAERS Safety Report 5835829-6 (Version None)
Quarter: 2008Q3

REPORT INFORMATION
  Report Type: 
  Country: None (occurrence: None)
  Receive Date: 20080806
  Receipt Date: 20080731
  Transmission Date: 20090109
  Serious: Yes (Other)
  Sender: FDA-Public Use
  Company Number: NL-BOEHRINGER INGELHEIM GMBH, GERMANY-2008-DE-04547GD

PATIENT

DRUGS (2)
  1. PERSANTINE [Suspect]
     Indication: ANTIPLATELET THERAPY
  2. ASCAL [Suspect]
     Indication: ANTIPLATELET THERAPY

REACTIONS (1)
  - TRANSIENT ISCHAEMIC ATTACK [None]
